FAERS Safety Report 25143545 (Version 1)
Quarter: 2025Q2

REPORT INFORMATION
  Report Type: Report from Study
  Country: US (occurrence: US)
  Receive Date: 20250401
  Receipt Date: 20250401
  Transmission Date: 20250717
  Serious: Yes (Other)
  Sender: ABBVIE
  Company Number: US-ABBVIE-6203331

PATIENT
  Age: 55 Year
  Sex: Male

DRUGS (1)
  1. UBRELVY [Suspect]
     Active Substance: UBROGEPANT
     Indication: Product used for unknown indication
     Route: 048

REACTIONS (2)
  - Neck surgery [Recovering/Resolving]
  - Coronary artery bypass [Recovering/Resolving]

NARRATIVE: CASE EVENT DATE: 20240430
